FAERS Safety Report 14544179 (Version 1)
Quarter: 2018Q1

REPORT INFORMATION
  Report Type: Spontaneous
  Country: US (occurrence: US)
  Receive Date: 20180215
  Receipt Date: 20180215
  Transmission Date: 20180509
  Serious: Yes (Hospitalization)
  Sender: FDA-Public Use
  Company Number: None

PATIENT
  Age: 14 Year
  Sex: Female

DRUGS (15)
  1. METRONIDAZOL [Concomitant]
     Active Substance: METRONIDAZOLE
  2. NEO/POLY/GRA SOL [Concomitant]
  3. SMZ-TMP [Concomitant]
     Active Substance: SULFAMETHOXAZOLE\TRIMETHOPRIM
  4. NORTRIPTYLIN [Concomitant]
     Active Substance: NORTRIPTYLINE
  5. OMEPRAZOLE. [Concomitant]
     Active Substance: OMEPRAZOLE
  6. CANASA [Concomitant]
     Active Substance: MESALAMINE
  7. MYSTOP [Concomitant]
  8. GABAPENTIN. [Concomitant]
     Active Substance: GABAPENTIN
  9. CLINDAMYCIN. [Concomitant]
     Active Substance: CLINDAMYCIN
  10. PROCTO-MED HC [Concomitant]
     Active Substance: HYDROCORTISONE
  11. STELARA [Suspect]
     Active Substance: USTEKINUMAB
     Indication: CROHN^S DISEASE
     Dosage: 390MG-OVER 1HR Q8WKS INFUSION
     Dates: start: 20171219
  12. MERCAPTOPUR [Concomitant]
  13. ENOXAPARIN [Concomitant]
     Active Substance: ENOXAPARIN
  14. CEPHALEXIN. [Concomitant]
     Active Substance: CEPHALEXIN
  15. LINZESS [Concomitant]
     Active Substance: LINACLOTIDE

REACTIONS (3)
  - Fistula [None]
  - Hypersensitivity [None]
  - Ileostomy [None]

NARRATIVE: CASE EVENT DATE: 201802
